FAERS Safety Report 13771968 (Version 2)
Quarter: 2017Q3

REPORT INFORMATION
  Report Type: Report from Study
  Country: None (occurrence: US)
  Receive Date: 20170720
  Receipt Date: 20170927
  Transmission Date: 20171127
  Serious: Yes (Other)
  Sender: FDA-Public Use
  Company Number: US-ABBVIE-17K-163-2042548-00

PATIENT
  Sex: Female
  Weight: 40.86 kg

DRUGS (5)
  1. NEURONTIN [Concomitant]
     Active Substance: GABAPENTIN
     Indication: MULTIPLE SCLEROSIS
  2. ADVAIR HFA [Concomitant]
     Active Substance: FLUTICASONE PROPIONATE\SALMETEROL XINAFOATE
     Indication: DYSPNOEA
  3. HUMIRA [Suspect]
     Active Substance: ADALIMUMAB
     Indication: CROHN^S DISEASE
     Route: 058
     Dates: start: 2016
  4. APRISO [Concomitant]
     Active Substance: MESALAMINE
     Indication: CROHN^S DISEASE
  5. OXYCODONE [Concomitant]
     Active Substance: OXYCODONE
     Indication: INTERVERTEBRAL DISC PROTRUSION

REACTIONS (12)
  - Tinnitus [Recovered/Resolved]
  - Surgery [Unknown]
  - Eye movement disorder [Recovered/Resolved]
  - Vertigo [Recovering/Resolving]
  - Neck pain [Recovering/Resolving]
  - Muscle spasms [Recovering/Resolving]
  - Weight decreased [Recovering/Resolving]
  - Hypoaesthesia [Recovering/Resolving]
  - Joint swelling [Not Recovered/Not Resolved]
  - Multiple sclerosis relapse [Recovering/Resolving]
  - Balance disorder [Recovering/Resolving]
  - Paraesthesia [Recovered/Resolved]

NARRATIVE: CASE EVENT DATE: 2017
